FAERS Safety Report 5869099-X (Version None)
Quarter: 2008Q3

REPORT INFORMATION
  Report Type: 
  Country: None (occurrence: None)
  Receive Date: 20080903
  Receipt Date: 20080822
  Transmission Date: 20090109
  Serious: Yes (Death)
  Sender: FDA-Public Use
  Company Number: JP-SANOFI-SYNTHELABO-A01200808796

PATIENT
  Sex: Male
  Weight: 55 kg

DRUGS (15)
  1. LEVOFOLINATE FOR IV INFUSION [Concomitant]
     Indication: COLON CANCER
     Route: 041
     Dates: start: 20080716, end: 20080717
  2. ELPLAT [Suspect]
     Indication: COLON CANCER
     Route: 041
     Dates: start: 20080716, end: 20080716
  3. BETAMETHASONE [Suspect]
     Indication: MALAISE
     Route: 048
     Dates: start: 20080710, end: 20080718
  4. FLUOROURACIL [Suspect]
     Indication: COLON CANCER
     Route: 040
     Dates: start: 20080716, end: 20080717
  5. FLUOROURACIL [Suspect]
     Route: 042
  6. MAGMITT [Concomitant]
     Indication: CONSTIPATION
     Route: 048
     Dates: start: 20080717
  7. GASTER D [Concomitant]
     Indication: PEPTIC ULCER
     Route: 048
     Dates: start: 20080708
  8. URINORM [Concomitant]
     Indication: HYPERURICAEMIA
     Route: 048
     Dates: start: 20080708
  9. BEZATOL SR [Concomitant]
     Indication: HYPERLIPIDAEMIA
     Route: 048
     Dates: start: 20080707
  10. LASIX [Concomitant]
     Indication: POLYURIA
     Route: 048
     Dates: start: 20080707
  11. KYTRIL [Concomitant]
     Indication: PREMEDICATION
     Route: 042
     Dates: start: 20080716, end: 20080716
  12. KYTRIL [Concomitant]
     Indication: NAUSEA
     Route: 042
     Dates: start: 20080716, end: 20080716
  13. KYTRIL [Concomitant]
     Route: 048
     Dates: start: 20080717
  14. KYTRIL [Concomitant]
     Route: 048
     Dates: start: 20080717
  15. DECADRON SRC [Concomitant]
     Indication: PREMEDICATION
     Route: 042
     Dates: start: 20080716, end: 20080716

REACTIONS (7)
  - DUODENAL PERFORATION [None]
  - HEPATIC FAILURE [None]
  - NEUTROPHIL COUNT DECREASED [None]
  - PERITONITIS [None]
  - PLATELET COUNT DECREASED [None]
  - RENAL FAILURE [None]
  - WHITE BLOOD CELL COUNT DECREASED [None]
